FAERS Safety Report 4456939-4 (Version None)
Quarter: 2004Q3

REPORT INFORMATION
  Report Type: 
  Country: None (occurrence: None)
  Receive Date: 20040923
  Receipt Date: 20040902
  Transmission Date: 20050211
  Serious: Yes (Life-Threatening, Hospitalization)
  Sender: FDA-Public Use
  Company Number: DE-MERCK-0409DEU00025

PATIENT
  Age: 76 Year
  Sex: Male
  Weight: 80 kg

DRUGS (10)
  1. AMLODIPINE MALEATE [Concomitant]
     Indication: CORONARY ARTERY DISEASE
     Route: 065
  2. AMLODIPINE MALEATE [Concomitant]
     Indication: HYPERTENSION
     Route: 065
  3. BISOPROLOL [Concomitant]
     Indication: HYPERTENSION
     Route: 065
  4. BISOPROLOL [Concomitant]
     Indication: CORONARY ARTERY DISEASE
     Route: 065
  5. GLIMEPIRIDE [Concomitant]
     Indication: DIABETES MELLITUS
     Route: 065
  6. PHENPROCOUMON [Concomitant]
     Indication: ATRIAL FIBRILLATION
     Route: 065
     Dates: end: 20040701
  7. PHENPROCOUMON [Concomitant]
     Route: 065
     Dates: end: 20040701
  8. RANITIDINE [Concomitant]
     Indication: GASTRITIS
     Route: 065
  9. VIOXX [Suspect]
     Indication: LOCALISED OSTEOARTHRITIS
     Route: 048
     Dates: start: 20040524, end: 20040703
  10. SOTALOL HYDROCHLORIDE [Concomitant]
     Indication: CORONARY ARTERY DISEASE
     Route: 065

REACTIONS (3)
  - EPISTAXIS [None]
  - HAEMATURIA [None]
  - RENAL FAILURE ACUTE [None]
